FAERS Safety Report 8378563-3 (Version None)
Quarter: 2012Q2

REPORT INFORMATION
  Report Type: 
  Country: None (occurrence: None)
  Receive Date: 20120522
  Receipt Date: 20120221
  Transmission Date: 20120825
  Serious: No
  Sender: FDA-Public Use
  Company Number: US-ASTRAZENECA-2012SE12164

PATIENT
  Sex: Female

DRUGS (1)
  1. PRILOSEC [Suspect]
     Dosage: 1 PER DAY INSTEAD OF 2 PER DAY
     Route: 048

REACTIONS (2)
  - INAPPROPRIATE SCHEDULE OF DRUG ADMINISTRATION [None]
  - GASTRIC DISORDER [None]
